FAERS Safety Report 9117461 (Version 2)
Quarter: 2013Q1

REPORT INFORMATION
  Report Type: Spontaneous
  Country: US (occurrence: US)
  Receive Date: 20130225
  Receipt Date: 20130321
  Transmission Date: 20140127
  Serious: No
  Sender: FDA-Public Use
  Company Number: US-BIOGENIDEC-2013BI012450

PATIENT
  Age: 57 Year
  Sex: Female

DRUGS (5)
  1. TYSABRI [Suspect]
     Indication: MULTIPLE SCLEROSIS
     Route: 042
     Dates: start: 20120607, end: 20121121
  2. AMYTRYPTILLINE [Concomitant]
     Indication: NEUROPATHY PERIPHERAL
     Dates: start: 201203
  3. HYDROCODONE [Concomitant]
     Indication: PAIN IN EXTREMITY
     Dates: start: 201203
  4. ZOFRAN [Concomitant]
     Indication: MALAISE
     Dates: start: 201206
  5. BUSPAR [Concomitant]
     Indication: NERVOUSNESS
     Dates: start: 201210

REACTIONS (6)
  - Pain in extremity [Not Recovered/Not Resolved]
  - Muscular weakness [Recovered/Resolved]
  - Burning sensation [Recovered/Resolved]
  - Headache [Recovered/Resolved]
  - Nervousness [Not Recovered/Not Resolved]
  - Drug ineffective [Unknown]
